FAERS Safety Report 4310217-2 (Version None)
Quarter: 2004Q1

REPORT INFORMATION
  Report Type: 
  Country: None (occurrence: None)
  Receive Date: 20040301
  Receipt Date: 20040301
  Transmission Date: 20041129
  Serious: Yes (Other)
  Sender: FDA-Public Use
  Company Number: None

PATIENT
  Age: 33 Year
  Sex: Male
  Weight: 64.4108 kg

DRUGS (2)
  1. DRIXORAL [Suspect]
  2. ST. JOHN'S WORT [Suspect]

REACTIONS (1)
  - SEROTONIN SYNDROME [None]
